FAERS Safety Report 11907195 (Version 1)
Quarter: 2016Q1

REPORT INFORMATION
  Report Type: Spontaneous
  Country: US (occurrence: US)
  Receive Date: 20160111
  Receipt Date: 20160111
  Transmission Date: 20160526
  Serious: Yes (Death)
  Sender: FDA-Public Use
  Company Number: US-MEDA-2016010053

PATIENT
  Age: 25 Year
  Sex: Male

DRUGS (2)
  1. CARISOPRODOL. [Suspect]
     Active Substance: CARISOPRODOL
  2. ETHANOL [Suspect]
     Active Substance: ALCOHOL

REACTIONS (1)
  - Death [Fatal]

NARRATIVE: CASE EVENT DATE: 2014
